FAERS Safety Report 8996944 (Version 2)
Quarter: 2013Q1

REPORT INFORMATION
  Report Type: Report from Study
  Country: GB (occurrence: GB)
  Receive Date: 20130104
  Receipt Date: 20130111
  Transmission Date: 20140127
  Serious: No
  Sender: FDA-Public Use
  Company Number: GB-INCYTE CORPORATION-2012IN002698

PATIENT
  Age: 54 Year
  Sex: Male

DRUGS (4)
  1. INC424 [Suspect]
     Indication: MYELOFIBROSIS
     Dosage: 20 MG, BID
     Route: 048
     Dates: start: 20121015, end: 20121220
  2. INC424 [Suspect]
     Dosage: 20 MG, BID
     Route: 048
     Dates: start: 20121211, end: 20121220
  3. INC424 [Suspect]
     Dosage: 10 MG, BID
     Route: 048
     Dates: start: 20121221, end: 20121223
  4. ANADIN [Concomitant]

REACTIONS (1)
  - Gout [Recovered/Resolved]
